FAERS Safety Report 25250418 (Version 1)
Quarter: 2025Q2

REPORT INFORMATION
  Report Type: Spontaneous
  Country: GB (occurrence: GB)
  Receive Date: 20250429
  Receipt Date: 20250429
  Transmission Date: 20250717
  Serious: Yes (Death, Other)
  Sender: AUROBINDO
  Company Number: GB-009507513-2302GBR000002

PATIENT
  Age: 76 Year
  Sex: Male

DRUGS (9)
  1. CARBOPLATIN [Suspect]
     Active Substance: CARBOPLATIN
     Indication: Adenosquamous cell lung cancer stage IV
     Route: 065
     Dates: start: 202012
  2. KEYTRUDA [Suspect]
     Active Substance: PEMBROLIZUMAB
     Indication: Adenosquamous cell lung cancer stage IV
     Route: 065
     Dates: start: 202012
  3. PACLITAXEL [Suspect]
     Active Substance: PACLITAXEL
     Indication: Adenosquamous cell lung cancer stage IV
     Route: 065
     Dates: start: 202012
  4. FUROSEMIDE [Concomitant]
     Active Substance: FUROSEMIDE
     Indication: Product used for unknown indication
     Route: 065
  5. AMLODIPINE [Concomitant]
     Active Substance: AMLODIPINE BESYLATE
     Indication: Product used for unknown indication
     Route: 065
  6. ASPIRIN [Concomitant]
     Active Substance: ASPIRIN
     Indication: Product used for unknown indication
     Route: 065
  7. LACTULOSE [Concomitant]
     Active Substance: LACTULOSE
     Indication: Product used for unknown indication
     Route: 065
  8. ALBUTEROL [Concomitant]
     Active Substance: ALBUTEROL
     Indication: Product used for unknown indication
     Route: 065
  9. BECLOMETHASONE [Concomitant]
     Active Substance: BECLOMETHASONE
     Indication: Product used for unknown indication
     Route: 065

REACTIONS (11)
  - Malignant neoplasm progression [Fatal]
  - Neuropathy peripheral [Unknown]
  - Deep vein thrombosis [Unknown]
  - Superior vena cava occlusion [Unknown]
  - Skin toxicity [Unknown]
  - COVID-19 [Unknown]
  - Dyspnoea [Unknown]
  - Haemoptysis [Unknown]
  - Tracheal mass [Unknown]
  - Blood calcium increased [Recovered/Resolved]
  - Device ineffective [Unknown]

NARRATIVE: CASE EVENT DATE: 20201201
